FAERS Safety Report 7682118-3 (Version None)
Quarter: 2011Q3

REPORT INFORMATION
  Report Type: 
  Country: None (occurrence: None)
  Receive Date: 20110804
  Receipt Date: 20110727
  Transmission Date: 20111222
  Serious: Yes (Other)
  Sender: FDA-Public Use
  Company Number: 2011SP035108

PATIENT
  Age: 50 Year
  Sex: Female
  Weight: 44 kg

DRUGS (2)
  1. REBETOL [Suspect]
     Indication: HEPATITIS C
     Dosage: BID
     Dates: start: 20110127
  2. PEG-INTRON [Suspect]
     Indication: HEPATITIS C
     Dosage: 100 MCG; SC
     Route: 058
     Dates: start: 20110127

REACTIONS (4)
  - NAUSEA [None]
  - DECREASED APPETITE [None]
  - NERVOUSNESS [None]
  - BLOOD DISORDER [None]
